FAERS Safety Report 8914039 (Version 3)
Quarter: 2013Q1

REPORT INFORMATION
  Report Type: Spontaneous
  Country: US (occurrence: US)
  Receive Date: 20121119
  Receipt Date: 20130107
  Transmission Date: 20140127
  Serious: No
  Sender: FDA-Public Use
  Company Number: US-009507513-1211USA000421

PATIENT
  Sex: Female
  Weight: 53.52 kg

DRUGS (3)
  1. CLARITIN REDITABS [Suspect]
     Indication: NASAL CONGESTION
     Dosage: UNK, UNKNOWN
     Route: 048
  2. CLARITIN REDITABS [Suspect]
     Indication: SNEEZING
     Dosage: UNK, UNKNOWN
     Route: 048
  3. CLARITIN REDITABS [Suspect]
     Indication: RHINORRHOEA

REACTIONS (1)
  - Drug ineffective [Unknown]
